FAERS Safety Report 4901858-X (Version None)
Quarter: 2006Q1

REPORT INFORMATION
  Report Type: 
  Country: None (occurrence: None)
  Receive Date: 20060206
  Receipt Date: 20060126
  Transmission Date: 20060701
  Serious: Yes (Death)
  Sender: FDA-Public Use
  Company Number: FR-ABBOTT-06P-056-0323480-00

PATIENT
  Age: 31 Year
  Sex: Male

DRUGS (2)
  1. VALPROATE CHRONO [Suspect]
     Indication: SUICIDE ATTEMPT
     Route: 048
  2. VALPROATE CHRONO [Suspect]
     Indication: DRUG USE FOR UNKNOWN INDICATION

REACTIONS (4)
  - INTENTIONAL DRUG MISUSE [None]
  - LUNG DISORDER [None]
  - OVERDOSE [None]
  - SUICIDE ATTEMPT [None]
